FAERS Safety Report 7690515-5 (Version None)
Quarter: 2011Q3

REPORT INFORMATION
  Report Type: 
  Country: None (occurrence: None)
  Receive Date: 20110818
  Receipt Date: 20110816
  Transmission Date: 20111222
  Serious: Yes (Other)
  Sender: FDA-Public Use
  Company Number: FR-PFIZER INC-2011188956

PATIENT
  Age: 50 Year
  Sex: Male

DRUGS (4)
  1. PRAZEPAM [Concomitant]
     Dosage: UNK
  2. ZOCOR [Concomitant]
     Dosage: UNK
  3. VARENICLINE TARTRATE [Suspect]
     Dosage: UNK
     Dates: start: 20110601, end: 20110701
  4. HALDOL [Concomitant]
     Dosage: UNK

REACTIONS (11)
  - VERTIGO [None]
  - DRY MOUTH [None]
  - SOMNOLENCE [None]
  - FATIGUE [None]
  - HOMICIDAL IDEATION [None]
  - VOMITING [None]
  - AGGRESSION [None]
  - DRUG INEFFECTIVE [None]
  - SUICIDAL IDEATION [None]
  - ABNORMAL BEHAVIOUR [None]
  - ABNORMAL DREAMS [None]
